FAERS Safety Report 5222687-6 (Version None)
Quarter: 2007Q1

REPORT INFORMATION
  Report Type: 
  Country: None (occurrence: None)
  Receive Date: 20061208
  Receipt Date: 20051128
  Transmission Date: 20070707
  Serious: Yes (Hospitalization, Other)
  Sender: FDA-Public Use
  Company Number: 2005161476

PATIENT
  Age: 72 Year
  Sex: Male
  Weight: 81.1939 kg

DRUGS (5)
  1. VIAGRA [Suspect]
     Indication: ERECTILE DYSFUNCTION
     Dosage: (100 MG, AS NECESSARY), ORAL
     Route: 048
  2. ALL OTHER THERAPEUTIC PRODUCTS (ALL OTHER THERAPEUTIC PRODUCTS) [Suspect]
     Indication: ILL-DEFINED DISORDER
  3. IBUPROFEN [Concomitant]
  4. FELODIPINE [Concomitant]
  5. SIMVASTATIN [Concomitant]

REACTIONS (5)
  - CEREBROVASCULAR ACCIDENT [None]
  - DIABETES MELLITUS [None]
  - ERECTILE DYSFUNCTION [None]
  - HYPERSENSITIVITY [None]
  - SPONTANEOUS PENILE ERECTION [None]
